FAERS Safety Report 4286233-6 (Version None)
Quarter: 2004Q1

REPORT INFORMATION
  Report Type: 
  Country: None (occurrence: None)
  Receive Date: 20040205
  Receipt Date: 20040205
  Transmission Date: 20041129
  Serious: Yes (Other)
  Sender: FDA-Public Use
  Company Number: None

PATIENT
  Age: 33 Year
  Sex: Female
  Weight: 70.3075 kg

DRUGS (1)
  1. ALPRAZOLAM [Suspect]
     Dosage: 0.5 MG ONE  5 QD

REACTIONS (5)
  - AGORAPHOBIA [None]
  - CONDITION AGGRAVATED [None]
  - DRUG EFFECT DECREASED [None]
  - PANIC DISORDER [None]
  - PHARMACEUTICAL PRODUCT COMPLAINT [None]
